FAERS Safety Report 19150051 (Version 1)
Quarter: 2021Q2

REPORT INFORMATION
  Report Type: Spontaneous
  Country: NL (occurrence: NL)
  Receive Date: 20210417
  Receipt Date: 20210417
  Transmission Date: 20210717
  Serious: Yes (Hospitalization)
  Sender: FDA-Public Use
  Company Number: NVSC2021NL077991

PATIENT
  Age: 28 Year
  Sex: Female
  Weight: 67 kg

DRUGS (2)
  1. AMITRIPTYLINE [Suspect]
     Active Substance: AMITRIPTYLINE
     Indication: NEURALGIA
     Dosage: 2 DF, QD (1 DOSAGE FORM, BID, 1X DAILY 2 TABLETS)
     Route: 048
     Dates: start: 2016
  2. FLUOXETINE [Suspect]
     Active Substance: FLUOXETINE HYDROCHLORIDE
     Indication: DEPRESSION
     Dosage: 2 DF, QD (1 DOSAGE FORM, BID/1X DAILY 2 CAPSULES)
     Route: 048
     Dates: start: 202003

REACTIONS (2)
  - Maternal exposure during pregnancy [Not Recovered/Not Resolved]
  - Multiple sclerosis relapse [Recovered/Resolved]

NARRATIVE: CASE EVENT DATE: 202009
